FAERS Safety Report 5840432-8 (Version None)
Quarter: 2008Q3

REPORT INFORMATION
  Report Type: 
  Country: None (occurrence: None)
  Receive Date: 20080807
  Receipt Date: 20080807
  Transmission Date: 20090109
  Serious: Yes (Hospitalization)
  Sender: FDA-Public Use
  Company Number: None

PATIENT
  Sex: Male
  Weight: 88.5 kg

DRUGS (1)
  1. CISPLATIN [Suspect]
     Dosage: 171 MG
     Dates: end: 20080428

REACTIONS (10)
  - ALANINE AMINOTRANSFERASE INCREASED [None]
  - ASPARTATE AMINOTRANSFERASE INCREASED [None]
  - BLOOD POTASSIUM INCREASED [None]
  - DEHYDRATION [None]
  - HYPOXIA [None]
  - ISCHAEMIC HEPATITIS [None]
  - PNEUMONIA [None]
  - RESPIRATORY DISORDER [None]
  - SOMNOLENCE [None]
  - UNRESPONSIVE TO STIMULI [None]
